FAERS Safety Report 24546309 (Version 1)
Quarter: 2024Q4

REPORT INFORMATION
  Report Type: Spontaneous
  Country: CN (occurrence: CN)
  Receive Date: 20241024
  Receipt Date: 20241024
  Transmission Date: 20250114
  Serious: Yes (Hospitalization, Other)
  Sender: MERCK
  Company Number: CN-009507513-2410CHN009968

PATIENT
  Age: 76 Year
  Sex: Male
  Weight: 44 kg

DRUGS (3)
  1. KEYTRUDA [Suspect]
     Active Substance: PEMBROLIZUMAB
     Indication: Gastric cancer
     Dosage: 200MG, ONCE
     Route: 041
     Dates: start: 20240924, end: 20240924
  2. OXALIPLATIN [Suspect]
     Active Substance: OXALIPLATIN
     Indication: Gastric cancer
     Dosage: 200MG. ONCE
     Route: 041
     Dates: start: 20240925, end: 20240925
  3. RALTITREXED [Suspect]
     Active Substance: RALTITREXED
     Indication: Gastric cancer
     Dosage: 4MG, ONCE
     Route: 041
     Dates: start: 20240926, end: 20240926

REACTIONS (3)
  - Agranulocytosis [Recovering/Resolving]
  - Platelet count decreased [Recovering/Resolving]
  - Product use issue [Unknown]

NARRATIVE: CASE EVENT DATE: 20241006
